FAERS Safety Report 4450196-0 (Version None)
Quarter: 2004Q3

REPORT INFORMATION
  Report Type: 
  Country: None (occurrence: None)
  Receive Date: 20040914
  Receipt Date: 20040830
  Transmission Date: 20050211
  Serious: Yes (Death, Hospitalization)
  Sender: FDA-Public Use
  Company Number: 03P-066-0221914-00

PATIENT
  Age: 64 Year
  Sex: Female
  Weight: 75 kg

DRUGS (7)
  1. HUMIRA [Suspect]
     Indication: RHEUMATOID ARTHRITIS
     Dosage: 1 IN 2 WK, SUBCUTANEOUS
     Route: 058
     Dates: start: 20030314, end: 20030313
  2. METHOTREXATE [Concomitant]
  3. PREDNISONE [Concomitant]
  4. FUROSEMIDE [Concomitant]
  5. GLIBENCLAMIDE [Concomitant]
  6. LISINOPRIL [Concomitant]
  7. RANITIDINE HYDROCHLORIDE [Concomitant]

REACTIONS (6)
  - BACTERAEMIA [None]
  - CARDIAC FAILURE [None]
  - DIABETES MELLITUS [None]
  - HISTIOCYTOSIS HAEMATOPHAGIC [None]
  - HYPOGLYCAEMIA [None]
  - INFECTION [None]
